FAERS Safety Report 9095270 (Version 1)
Quarter: 2013Q1

REPORT INFORMATION
  Report Type: Spontaneous
  Country: GB (occurrence: None)
  Receive Date: 20130122
  Receipt Date: 20130122
  Transmission Date: 20140127
  Serious: Yes (Other)
  Sender: FDA-Public Use
  Company Number: FK201300114

PATIENT
  Age: 52 Year
  Sex: Male

DRUGS (4)
  1. IRINOTECAN (MANUFACTURER UNKNOWN)(IRINOTECAN)(IRINOTECAN) [Suspect]
     Indication: COLORECTAL CANCER METASTATIC
  2. OXALIPLATIN (MANUFACTURER UNKNOWN)(OXALIPLATIN)(OXALIPLATIN) [Suspect]
     Indication: COLORECTAL CANCER METASTATIC
  3. FLUOROURACIL (FLUOROURACIL)(FLUOROURACIL) [Suspect]
     Indication: COLORECTAL CANCER METASTATIC
  4. FOLINIC ACID (FOLINIC ACID)(FOLINIC ACID) [Suspect]
     Indication: COLORECTAL CANCER METASTATIC

REACTIONS (2)
  - Myocardial infarction [None]
  - Arteriospasm coronary [None]
